FAERS Safety Report 6286355-4 (Version None)
Quarter: 2009Q3

REPORT INFORMATION
  Report Type: 
  Country: None (occurrence: None)
  Receive Date: 20090727
  Receipt Date: 20090727
  Transmission Date: 20100115
  Serious: Yes (Death, Life-Threatening, Hospitalization, Disabling)
  Sender: FDA-Public Use
  Company Number: None

PATIENT
  Sex: Male
  Weight: 95.5 kg

DRUGS (1)
  1. ALLOPURINOL [Suspect]
     Indication: GOUT
     Dosage: 1 DAILY MOUTH
     Route: 048
     Dates: start: 20090520, end: 20090614

REACTIONS (3)
  - SKIN BURNING SENSATION [None]
  - STEVENS-JOHNSON SYNDROME [None]
  - VISUAL ACUITY REDUCED [None]
